FAERS Safety Report 5191429-5 (Version None)
Quarter: 2006Q4

REPORT INFORMATION
  Report Type: 
  Country: None (occurrence: None)
  Receive Date: 20061226
  Receipt Date: 20061217
  Transmission Date: 20070319
  Serious: Yes (Hospitalization)
  Sender: FDA-Public Use
  Company Number: 2006SE06781

PATIENT
  Age: 77 Year
  Sex: Female

DRUGS (9)
  1. NEXIUM [Suspect]
     Route: 042
     Dates: start: 20060925, end: 20061002
  2. EUSAPRIM [Suspect]
     Dosage: 20 ML DAILY
     Route: 042
     Dates: start: 20061002, end: 20061009
  3. FLAGYL [Suspect]
     Indication: SEPSIS
     Route: 042
     Dates: start: 20061004, end: 20061009
  4. CIPROFLOXACIN HYDROCHLORIDE [Suspect]
     Indication: SEPSIS
     Route: 042
     Dates: start: 20060926, end: 20061001
  5. DIFLUCAN [Suspect]
     Indication: SEPSIS
     Route: 042
     Dates: start: 20061003, end: 20061005
  6. ACTRAPID [Concomitant]
  7. LEVAXIN [Concomitant]
  8. LANTUS [Concomitant]
     Dosage: 100 UNITS/ML
  9. ORALVITE [Concomitant]

REACTIONS (6)
  - BLOOD BILIRUBIN INCREASED [None]
  - CHOLESTASIS [None]
  - DIALYSIS [None]
  - HEPATIC FIBROSIS [None]
  - HEPATOCELLULAR DAMAGE [None]
  - MULTI-ORGAN FAILURE [None]
